FAERS Safety Report 25645045 (Version 1)
Quarter: 2025Q3

REPORT INFORMATION
  Report Type: Other
  Country: GB (occurrence: GB)
  Receive Date: 20250805
  Receipt Date: 20250805
  Transmission Date: 20251020
  Serious: Yes (Hospitalization, Other)
  Sender: MACLEODS
  Company Number: None

PATIENT

DRUGS (18)
  1. IRBESARTAN [Suspect]
     Active Substance: IRBESARTAN
     Indication: Product used for unknown indication
     Dosage: 300 MG TABLETS ONE TO BE TAKEN DAILY - SUSPENDED, AKI
     Route: 065
  2. DAPAGLIFLOZIN [Suspect]
     Active Substance: DAPAGLIFLOZIN
     Indication: Product used for unknown indication
     Dosage: TEMPORARILY HELD AND THEN RESTARTED ONCE AKI HAD RESOLVED
     Route: 065
  3. INDAPAMIDE [Suspect]
     Active Substance: INDAPAMIDE
     Indication: Product used for unknown indication
     Dosage: 1.5 MG MODIFIED-RELEASE TABLETS ONE TO BE TAKEN EACH MORNING - SUSPENDED, AKI
     Route: 065
  4. FUROSEMIDE [Suspect]
     Active Substance: FUROSEMIDE
     Indication: Product used for unknown indication
     Dosage: 40 MG TABLETS ONE TO BE TAKEN IN THE MORNING AND AT LUNCH TIME - SUSPENDED, AKI
     Route: 065
  5. EZETIMIBE [Concomitant]
     Active Substance: EZETIMIBE
     Indication: Product used for unknown indication
     Dosage: 10 MG TABLETS ONE TO BE TAKEN EACH NIGHT
     Route: 065
  6. DIBUCAINE [Concomitant]
     Active Substance: DIBUCAINE
     Indication: Product used for unknown indication
     Route: 061
  7. PRAVASTATIN [Concomitant]
     Active Substance: PRAVASTATIN
     Indication: Product used for unknown indication
     Dosage: 10 MG TABLETS ONE TO BE TAKEN AT NIGHT
     Route: 065
  8. OMEPRAZOLE [Concomitant]
     Active Substance: OMEPRAZOLE
     Indication: Product used for unknown indication
     Dosage: 20 MG GASTRO-RESISTANT CAPSULES TWO TO BE TAKEN EACH DAY
     Route: 065
  9. LATANOPROST [Concomitant]
     Active Substance: LATANOPROST
     Indication: Product used for unknown indication
     Dosage: 0.2 ML UNIT DOSE PRESERVATIVE FREE ONE DROP USED AT NIGHT IN NOT SPECIFIED
     Route: 065
     Dates: start: 20250715
  10. BECLOMETHASONE DIPROPIONATE [Concomitant]
     Active Substance: BECLOMETHASONE DIPROPIONATE
     Indication: Product used for unknown indication
     Dosage: 200 MICROGRAMS / DOSE INHALER TWO PUFFS TO BE INHALED TWICE A DAY
  11. Cosopt iMulti [Concomitant]
     Indication: Product used for unknown indication
     Dosage: 1 DROP TO BE USED 2 A DAY IN THE LEFT EYE
     Route: 065
  12. TIMOLOL [Concomitant]
     Active Substance: TIMOLOL
     Indication: Product used for unknown indication
     Route: 065
  13. Latanoprost 50 micrograms / ml / Timolol 5 mg / ml eye drops [Concomitant]
     Indication: Product used for unknown indication
     Dosage: 0.2 ML UNIT DOSE PRESERVATIVE FREE USE ONCE DAILY AT NIGHT IN THE RIGHT EYE
     Route: 065
  14. SIMBRINZA [Concomitant]
     Active Substance: BRIMONIDINE TARTRATE\BRINZOLAMIDE
     Indication: Product used for unknown indication
     Dosage: 10 MG/ML/ 2 MG/ML ONE DROP TO BE USED IN RIGHT EYE TWICE A DAY
     Route: 065
  15. ACETAMINOPHEN [Concomitant]
     Active Substance: ACETAMINOPHEN
     Indication: Product used for unknown indication
     Dosage: ONE TO BE TAKEN EVERY 4-6 HOURS UP TO FOUR TIMES A DAY
     Route: 065
  16. LACTULOSE [Concomitant]
     Active Substance: LACTULOSE
     Indication: Product used for unknown indication
     Route: 065
  17. HYDROCORTISONE [Concomitant]
     Active Substance: HYDROCORTISONE
     Indication: Product used for unknown indication
     Route: 061
     Dates: end: 20250715
  18. Heparinoid [Concomitant]
     Indication: Product used for unknown indication
     Dosage: 0.3% CREAM APPLY THREE TIMES A DAY
     Route: 065

REACTIONS (1)
  - Acute kidney injury [Recovered/Resolved]
